FAERS Safety Report 16187572 (Version 1)
Quarter: 2019Q2

REPORT INFORMATION
  Report Type: Spontaneous
  Country: PH (occurrence: PH)
  Receive Date: 20190412
  Receipt Date: 20190412
  Transmission Date: 20190711
  Serious: Yes (Life-Threatening)
  Sender: FDA-Public Use
  Company Number: PH-SA-2019SA101514

PATIENT
  Age: 55 Year
  Sex: Male

DRUGS (1)
  1. SOLIQUA 100/33 [Suspect]
     Active Substance: INSULIN GLARGINE\LIXISENATIDE
     Dosage: 15 U, HS
     Route: 065

REACTIONS (2)
  - Dyspnoea [Unknown]
  - Cardiac disorder [Unknown]
